FAERS Safety Report 25098971 (Version 1)
Quarter: 2025Q1

REPORT INFORMATION
  Report Type: Report from Study
  Country: US (occurrence: US)
  Receive Date: 20250320
  Receipt Date: 20250320
  Transmission Date: 20250409
  Serious: Yes (Other)
  Sender: NOVARTIS
  Company Number: US-002147023-NVSC2025US045178

PATIENT
  Sex: Female

DRUGS (1)
  1. KESIMPTA [Suspect]
     Active Substance: OFATUMUMAB
     Indication: Product used for unknown indication
     Route: 065

REACTIONS (5)
  - Multiple sclerosis [Unknown]
  - Neuropathy peripheral [Unknown]
  - Eyelid irritation [Unknown]
  - Visual impairment [Unknown]
  - Eye disorder [Unknown]
